FAERS Safety Report 16253832 (Version 21)
Quarter: 2020Q4

REPORT INFORMATION
  Report Type: Spontaneous
  Country: PL (occurrence: PL)
  Receive Date: 20190430
  Receipt Date: 20201228
  Transmission Date: 20210113
  Serious: Yes (Other)
  Sender: FDA-Public Use
  Company Number: PHHY2019PL097689

PATIENT
  Age: 65 Year
  Sex: Female

DRUGS (18)
  1. ACETAMINOPHEN (PARACETAMOL) [Suspect]
     Active Substance: ACETAMINOPHEN
     Indication: PAIN
     Dosage: 375 MG, QD
     Route: 065
  2. TRAMADOL. [Suspect]
     Active Substance: TRAMADOL
     Dosage: 37.5 MG, UNK
     Route: 065
  3. IBUPROFEN. [Suspect]
     Active Substance: IBUPROFEN
     Indication: PAIN
  4. DICLOFENAC [Suspect]
     Active Substance: DICLOFENAC
     Dosage: 75 MG, BID
     Route: 061
  5. DICLOFENAC [Suspect]
     Active Substance: DICLOFENAC
     Dosage: UNK, Q12H
     Route: 061
  6. DICLOFENAC [Suspect]
     Active Substance: DICLOFENAC
     Dosage: 150 MG, QD
     Route: 061
  7. ACETAMINOPHEN (PARACETAMOL) [Suspect]
     Active Substance: ACETAMINOPHEN
     Dosage: 4 ?G/L, QD
     Route: 065
  8. DICLOFENAC [Suspect]
     Active Substance: DICLOFENAC
     Indication: BACK PAIN
     Dosage: UNK UNK, QW
     Route: 061
  9. DICLOFENAC [Suspect]
     Active Substance: DICLOFENAC
     Indication: ARTHRALGIA
     Dosage: 150 MG, BID
     Route: 065
  10. DICLOFENAC [Suspect]
     Active Substance: DICLOFENAC
     Dosage: 150 MG, BID
     Route: 065
  11. TRAMADOL. [Suspect]
     Active Substance: TRAMADOL
     Dosage: 4 UG/L, QD
     Route: 065
  12. IBUPROFEN. [Suspect]
     Active Substance: IBUPROFEN
     Indication: ARTHRALGIA
     Dosage: 400 MG, QD
     Route: 065
  13. METAMIZOLE [Suspect]
     Active Substance: METAMIZOLE
     Indication: PAIN
     Dosage: 500 MG, TID IMMEDIATELY
     Route: 065
  14. METAMIZOLE [Suspect]
     Active Substance: METAMIZOLE
     Indication: BACK PAIN
     Dosage: 500 MG
     Route: 065
  15. METAMIZOLE [Suspect]
     Active Substance: METAMIZOLE
     Indication: ARTHRALGIA
     Dosage: 500 MG, QD
     Route: 065
  16. DICLOFENAC [Suspect]
     Active Substance: DICLOFENAC
     Indication: PAIN
     Dosage: TRANSDERMAL PATCH
     Route: 061
  17. IBUPROFEN. [Suspect]
     Active Substance: IBUPROFEN
     Indication: BACK PAIN
  18. TRAMADOL. [Suspect]
     Active Substance: TRAMADOL
     Indication: PAIN
     Dosage: 100 MG, BID
     Route: 065

REACTIONS (16)
  - Abdominal pain [Recovering/Resolving]
  - Abdominal pain upper [Unknown]
  - Spinal cord compression [Unknown]
  - Nausea [Recovered/Resolved]
  - Palpitations [Unknown]
  - Drug ineffective [Unknown]
  - Intervertebral disc disorder [Unknown]
  - Osteoarthritis [Unknown]
  - Muscle tone disorder [Unknown]
  - Dry mouth [Recovered/Resolved]
  - Oedema peripheral [Unknown]
  - Arthropathy [Unknown]
  - Dyspepsia [Unknown]
  - Off label use [Unknown]
  - Bone density decreased [Unknown]
  - Back pain [Recovering/Resolving]
